FAERS Safety Report 14598941 (Version 3)
Quarter: 2018Q2

REPORT INFORMATION
  Report Type: Spontaneous
  Country: JP (occurrence: JP)
  Receive Date: 20180305
  Receipt Date: 20180615
  Transmission Date: 20180711
  Serious: Yes (Hospitalization)
  Sender: FDA-Public Use
  Company Number: JP-CELGENEUS-JPN-20180209353

PATIENT
  Age: 8 Decade
  Sex: Male

DRUGS (3)
  1. DECADRON [Suspect]
     Active Substance: DEXAMETHASONE
     Indication: PLASMA CELL MYELOMA
     Route: 065
     Dates: start: 20170518
  2. REVLIMID [Suspect]
     Active Substance: LENALIDOMIDE
     Indication: PLASMA CELL MYELOMA
     Route: 048
     Dates: start: 201606
  3. POMALYST [Suspect]
     Active Substance: POMALIDOMIDE
     Indication: PLASMA CELL MYELOMA
     Dosage: 2 MILLIGRAM
     Route: 048
     Dates: start: 20170518, end: 20180103

REACTIONS (2)
  - Colon cancer [Recovering/Resolving]
  - Anaemia [Unknown]

NARRATIVE: CASE EVENT DATE: 20180114
